FAERS Safety Report 13945168 (Version 4)
Quarter: 2017Q4

REPORT INFORMATION
  Report Type: Spontaneous
  Country: GB (occurrence: GB)
  Receive Date: 20170907
  Receipt Date: 20171004
  Transmission Date: 20180320
  Serious: Yes (Other)
  Sender: FDA-Public Use
  Company Number: GB-PFIZER INC-2017381576

PATIENT
  Age: 19 Year
  Sex: Male
  Weight: 72 kg

DRUGS (3)
  1. VENLAFAXINE HCL [Suspect]
     Active Substance: VENLAFAXINE HYDROCHLORIDE
     Indication: ANXIETY
     Dosage: 37.5 MG, 1X/DAY ONE AT NIGHT FOR 1 WEEK
     Route: 048
     Dates: start: 20170425, end: 201705
  2. CYCLIZINE HYDROCHLORIDE [Concomitant]
     Active Substance: CYCLIZINE HYDROCHLORIDE
     Dosage: UNK
  3. VENLAFAXINE HCL [Suspect]
     Active Substance: VENLAFAXINE HYDROCHLORIDE
     Dosage: 37.5 MG, 2X/DAY ONE TWICE DAILY
     Route: 048
     Dates: start: 2017, end: 2017

REACTIONS (6)
  - Nausea [Unknown]
  - Serotonin syndrome [Recovered/Resolved]
  - Pyrexia [Unknown]
  - Agitation [Unknown]
  - Hyperhidrosis [Unknown]
  - Tremor [Unknown]

NARRATIVE: CASE EVENT DATE: 2017
